FAERS Safety Report 24445142 (Version 1)
Quarter: 2024Q4

REPORT INFORMATION
  Report Type: Spontaneous
  Country: JP (occurrence: JP)
  Receive Date: 20241016
  Receipt Date: 20241016
  Transmission Date: 20250114
  Serious: Yes (Other)
  Sender: ALEXION PHARMACEUTICALS
  Company Number: JP-ASTRAZENECA-240102833_030330_P_1

PATIENT

DRUGS (4)
  1. PULMICORT TURBUHALER [Suspect]
     Active Substance: BUDESONIDE
     Dosage: 100 MICROGRAM
  2. PULMICORT TURBUHALER [Suspect]
     Active Substance: BUDESONIDE
     Dosage: 100 MICROGRAM
  3. PULMICORT TURBUHALER [Suspect]
     Active Substance: BUDESONIDE
     Dosage: 100 MICROGRAM
  4. PULMICORT TURBUHALER [Suspect]
     Active Substance: BUDESONIDE
     Dosage: 100 MICROGRAM

REACTIONS (5)
  - Laryngeal haemorrhage [Unknown]
  - Productive cough [Unknown]
  - Chest discomfort [Unknown]
  - Haemorrhage [Unknown]
  - Dysphonia [Unknown]
